FAERS Safety Report 22340565 (Version 1)
Quarter: 2023Q2

REPORT INFORMATION
  Report Type: Spontaneous
  Country: US (occurrence: US)
  Receive Date: 20230518
  Receipt Date: 20230518
  Transmission Date: 20230722
  Serious: No
  Sender: FDA-Public Use
  Company Number: US-TEVA-2023-US-2886041

PATIENT
  Age: 49 Year
  Sex: Female
  Weight: 72.57 kg

DRUGS (6)
  1. AJOVY [Suspect]
     Active Substance: FREMANEZUMAB-VFRM
     Indication: Migraine
     Dosage: STRENGTH: 225 MG / 1.5 ML, 675 MG EVERY 3 MONTHS
     Route: 065
  2. AJOVY [Suspect]
     Active Substance: FREMANEZUMAB-VFRM
  3. SKYRIZI [Concomitant]
     Active Substance: RISANKIZUMAB-RZAA
     Indication: Product used for unknown indication
     Dosage: ONCE EVERY 3 MONTHS
  4. Vivi [Concomitant]
     Indication: Product used for unknown indication
  5. DICLOFENAC [Concomitant]
     Active Substance: DICLOFENAC
     Indication: Product used for unknown indication
  6. FLEXERIL [Concomitant]
     Active Substance: CYCLOBENZAPRINE HYDROCHLORIDE
     Indication: Product used for unknown indication
     Dosage: AS NEEDED

REACTIONS (8)
  - Injection site urticaria [Unknown]
  - Muscle tightness [Unknown]
  - Feeling abnormal [Unknown]
  - Skin tightness [Unknown]
  - Throat irritation [Unknown]
  - Injection site pain [Unknown]
  - Migraine [Unknown]
  - Weight increased [Unknown]

NARRATIVE: CASE EVENT DATE: 20230401
